FAERS Safety Report 23029280 (Version 1)
Quarter: 2023Q4

REPORT INFORMATION
  Report Type: Spontaneous
  Country: US (occurrence: US)
  Receive Date: 20231004
  Receipt Date: 20231004
  Transmission Date: 20240109
  Serious: Yes (Other)
  Sender: FDA-Public Use
  Company Number: US-Stemline Therapeutics, Inc.-2023ST002089

PATIENT
  Age: 66 Year
  Sex: Female

DRUGS (1)
  1. ORSERDU [Suspect]
     Active Substance: ELACESTRANT
     Indication: Product used for unknown indication
     Route: 048
     Dates: start: 20230623, end: 20230912

REACTIONS (16)
  - Neoplasm progression [Unknown]
  - Illness [Unknown]
  - Musculoskeletal pain [Not Recovered/Not Resolved]
  - Product dose omission issue [Unknown]
  - Eating disorder [Not Recovered/Not Resolved]
  - Drug ineffective [Unknown]
  - Arthritis [Unknown]
  - Inflammation [Unknown]
  - Renal disorder [Unknown]
  - Liver disorder [Unknown]
  - Hypoaesthesia [Unknown]
  - Paraesthesia [Unknown]
  - Dysstasia [Unknown]
  - Rash [Unknown]
  - Nausea [Unknown]
  - Hot flush [Unknown]
